FAERS Safety Report 5083886-X (Version None)
Quarter: 2006Q3

REPORT INFORMATION
  Report Type: 
  Country: None (occurrence: None)
  Receive Date: 20060727
  Receipt Date: 20060424
  Transmission Date: 20061208
  Serious: Yes (Other)
  Sender: FDA-Public Use
  Company Number: 2006055133

PATIENT
  Age: 38 Year
  Sex: Female

DRUGS (6)
  1. LYRICA [Suspect]
     Indication: ILL-DEFINED DISORDER
  2. REBIF [Concomitant]
  3. CYMBALTA [Concomitant]
  4. DARVOCET [Concomitant]
  5. NAPROXEN [Concomitant]
  6. SKELAXIN [Concomitant]

REACTIONS (1)
  - MENTAL DISORDER [None]
